FAERS Safety Report 9107527 (Version 1)
Quarter: 2013Q1

REPORT INFORMATION
  Report Type: Spontaneous
  Country: US (occurrence: US)
  Receive Date: 20130221
  Receipt Date: 20130221
  Transmission Date: 20140127
  Serious: No
  Sender: FDA-Public Use
  Company Number: US-009507513-1210USA002665

PATIENT
  Age: 39 Year
  Sex: Female
  Weight: 52.15 kg

DRUGS (1)
  1. NUVARING [Suspect]
     Dosage: 3 WEEKS IN, 1 WEEK OUT
     Route: 067
     Dates: start: 2007

REACTIONS (2)
  - Nausea [Unknown]
  - Incorrect drug administration duration [Unknown]
